FAERS Safety Report 6842655-8 (Version None)
Quarter: 2010Q3

REPORT INFORMATION
  Report Type: 
  Country: None (occurrence: None)
  Receive Date: 20100714
  Receipt Date: 20070803
  Transmission Date: 20110219
  Serious: No
  Sender: FDA-Public Use
  Company Number: US-PFIZER INC-2007065769

PATIENT
  Sex: Female
  Weight: 74.8 kg

DRUGS (9)
  1. CHANTIX [Suspect]
     Indication: SMOKING CESSATION THERAPY
     Dates: start: 20070731
  2. PROZAC [Concomitant]
  3. DILANTIN [Concomitant]
  4. SINEMET [Concomitant]
  5. ACETAMINOPHEN [Concomitant]
  6. MONTELUKAST SODIUM [Concomitant]
  7. PREVACID [Concomitant]
  8. SPIRONOLACTONE [Concomitant]
  9. ALL OTHER THERAPEUTIC PRODUCTS [Concomitant]

REACTIONS (1)
  - SOMNOLENCE [None]
